FAERS Safety Report 6122768-9 (Version None)
Quarter: 2009Q1

REPORT INFORMATION
  Report Type: 
  Country: None (occurrence: None)
  Receive Date: 20090318
  Receipt Date: 20090313
  Transmission Date: 20090719
  Serious: Yes (Hospitalization)
  Sender: FDA-Public Use
  Company Number: FR-AVENTIS-200910999FR

PATIENT
  Age: 77 Year
  Sex: Male

DRUGS (7)
  1. LASIX [Suspect]
     Route: 048
  2. ORAL BLOOD GLUCOSE LOWERING DRUGS [Suspect]
     Indication: TYPE 2 DIABETES MELLITUS
     Route: 048
     Dates: start: 20090124, end: 20090124
  3. DIGITALINE NATIVELLE [Suspect]
     Route: 048
  4. PREVISCAN                          /00789001/ [Suspect]
     Route: 048
  5. RAMIPRIL BOUCHARA RECORDATI [Suspect]
     Route: 048
  6. SERETIDE [Suspect]
     Route: 055
  7. SPIRIVA [Suspect]
     Route: 048

REACTIONS (3)
  - ABDOMINAL PAIN [None]
  - ANGIOEDEMA [None]
  - PALATAL OEDEMA [None]
